FAERS Safety Report 24466667 (Version 1)
Quarter: 2024Q4

REPORT INFORMATION
  Report Type: Report from Study
  Country: US (occurrence: US)
  Receive Date: 20241018
  Receipt Date: 20241018
  Transmission Date: 20250114
  Serious: No
  Sender: ROCHE
  Company Number: US-ROCHE-3550045

PATIENT
  Age: 70 Year
  Sex: Male
  Weight: 82.2 kg

DRUGS (12)
  1. XOLAIR [Suspect]
     Active Substance: OMALIZUMAB
     Indication: Idiopathic urticaria
     Route: 058
  2. FLUTICASONE PROPIONATE [Concomitant]
     Active Substance: FLUTICASONE PROPIONATE
     Dosage: 50 MCG
  3. SINGULAIR [Concomitant]
     Active Substance: MONTELUKAST SODIUM
  4. ZOLOFT [Concomitant]
     Active Substance: SERTRALINE HYDROCHLORIDE
  5. ZOLPIDEM [Concomitant]
     Active Substance: ZOLPIDEM TARTRATE
     Dosage: 6.25 MG ORAL TABLET
  6. BETAMETHASONE DIPROPIONATE [Concomitant]
     Active Substance: BETAMETHASONE DIPROPIONATE
  7. MUPIROCIN [Concomitant]
     Active Substance: MUPIROCIN
  8. TAMSULOSIN [Concomitant]
     Active Substance: TAMSULOSIN
  9. CETIRIZINE [Concomitant]
     Active Substance: CETIRIZINE HYDROCHLORIDE
  10. XIIDRA [Concomitant]
     Active Substance: LIFITEGRAST
  11. OMEPRAZOLE [Concomitant]
     Active Substance: OMEPRAZOLE
  12. SYNTHROID [Concomitant]
     Active Substance: LEVOTHYROXINE SODIUM

REACTIONS (6)
  - Arthralgia [Unknown]
  - Trigger finger [Unknown]
  - Mucosal disorder [Unknown]
  - Rash [Unknown]
  - Dermatitis atopic [Unknown]
  - Rhinitis [Unknown]
